FAERS Safety Report 8985158 (Version 1)
Quarter: 2012Q4

REPORT INFORMATION
  Report Type: 
  Country: US (occurrence: US)
  Receive Date: 20121226
  Receipt Date: 20121226
  Transmission Date: 20130627
  Serious: No
  Sender: FDA-Public Use
  Company Number: US-BAYER-2012-132857

PATIENT
  Age: 39 Year
  Sex: Female

DRUGS (3)
  1. MIRENA [Suspect]
     Dosage: 20 mcg/24hr, CONT
     Route: 015
     Dates: start: 2011
  2. LAMICTAL [Concomitant]
     Indication: MOOD DISORDER NOS
     Dosage: 200mg in am and 100mg in am
     Route: 048
     Dates: start: 200712
  3. LAMICTAL [Concomitant]
     Indication: MOOD DISORDER NOS
     Dosage: 200mg in am and 100mg in am
     Dates: start: 200712

REACTIONS (3)
  - Pregnancy with contraceptive device [None]
  - Drug ineffective [None]
  - Breast disorder [None]
